FAERS Safety Report 5117364-6 (Version None)
Quarter: 2006Q3

REPORT INFORMATION
  Report Type: 
  Country: None (occurrence: None)
  Receive Date: 20060926
  Receipt Date: 20060915
  Transmission Date: 20061208
  Serious: Yes (Hospitalization)
  Sender: FDA-Public Use
  Company Number: 2006BI013186

PATIENT
  Age: 38 Year
  Sex: Female
  Weight: 69.4003 kg

DRUGS (13)
  1. AVONEX [Suspect]
     Indication: MULTIPLE SCLEROSIS
     Dosage: 30 UG QW IM
     Route: 030
     Dates: start: 19960901, end: 20030101
  2. AVONEX [Suspect]
     Indication: MULTIPLE SCLEROSIS
     Dosage: 30 UG QW IM
     Route: 030
     Dates: start: 20040301
  3. PROVENTIL [Concomitant]
  4. FLONASE [Concomitant]
  5. FLOVENT [Concomitant]
  6. ZYRTEC [Concomitant]
  7. VALTREX [Concomitant]
  8. ABREVA [Concomitant]
  9. BLISTEX [Concomitant]
  10. DOXYCYCLINE [Concomitant]
  11. NEURONTIN [Concomitant]
  12. IMURAN [Concomitant]
  13. PREDNISONE TAB [Concomitant]

REACTIONS (17)
  - ABDOMINAL DISCOMFORT [None]
  - ANXIETY [None]
  - CHEST PAIN [None]
  - CONDITION AGGRAVATED [None]
  - DYSURIA [None]
  - INITIAL INSOMNIA [None]
  - MIDDLE INSOMNIA [None]
  - MULTIPLE SCLEROSIS [None]
  - MUSCLE SPASMS [None]
  - OEDEMA PERIPHERAL [None]
  - PAIN [None]
  - URINARY HESITATION [None]
  - URINARY RETENTION [None]
  - URINARY TRACT INFECTION [None]
  - URTICARIA [None]
  - UTERINE MASS [None]
  - WEIGHT DECREASED [None]
